FAERS Safety Report 4376901-X (Version None)
Quarter: 2004Q2

REPORT INFORMATION
  Report Type: 
  Country: None (occurrence: None)
  Receive Date: 20040609
  Receipt Date: 20040318
  Transmission Date: 20050107
  Serious: Yes (Hospitalization, Other)
  Sender: FDA-Public Use
  Company Number: US-SHR-04-022744

PATIENT
  Age: 36 Year
  Sex: Female
  Weight: 57.6 kg

DRUGS (5)
  1. YASMIN [Suspect]
     Indication: ORAL CONTRACEPTION
     Dosage: 1 TAB(S), 1X/DAY, ORAL
     Route: 048
     Dates: end: 20030801
  2. CLARITIN     /USA/ (LORATADINE) [Concomitant]
  3. SINGULAIR ^MERCK^ (MONTELUKAST SODIUM) [Concomitant]
  4. FLOVENT [Concomitant]
  5. DARVON [Concomitant]

REACTIONS (3)
  - AMENORRHOEA [None]
  - DEEP VEIN THROMBOSIS [None]
  - POST THROMBOTIC SYNDROME [None]
